FAERS Safety Report 17747206 (Version 1)
Quarter: 2020Q2

REPORT INFORMATION
  Report Type: Spontaneous
  Country: GB (occurrence: GB)
  Receive Date: 20200505
  Receipt Date: 20200505
  Transmission Date: 20200714
  Serious: Yes (Other)
  Sender: FDA-Public Use
  Company Number: GB-MYLANLABS-2020M1044414

PATIENT
  Sex: Female

DRUGS (1)
  1. CLOZARIL [Suspect]
     Active Substance: CLOZAPINE
     Indication: BIPOLAR I DISORDER
     Dosage: UNK

REACTIONS (4)
  - Pancytopenia [Unknown]
  - Off label use [Unknown]
  - Neutropenia [Unknown]
  - Breast cancer [Unknown]
